FAERS Safety Report 4776394-4 (Version None)
Quarter: 2005Q3

REPORT INFORMATION
  Report Type: 
  Country: None (occurrence: None)
  Receive Date: 20050921
  Receipt Date: 20050912
  Transmission Date: 20060218
  Serious: Yes (Hospitalization)
  Sender: FDA-Public Use
  Company Number: 12323

PATIENT
  Age: 61 Year
  Sex: Male

DRUGS (8)
  1. FLUOROURACIL [Suspect]
     Indication: METASTASES TO LIVER
     Dosage: 400 MG/M2 PER_CYCLE IV
     Route: 042
  2. FLUOROURACIL [Suspect]
     Indication: RECTAL CANCER
     Dosage: 400 MG/M2 PER_CYCLE IV
     Route: 042
  3. FLUOROURACIL [Suspect]
     Indication: METASTASES TO LIVER
     Dosage: 2400 MG PER_CYCLE IV
     Route: 042
  4. FLUOROURACIL [Suspect]
     Indication: RECTAL CANCER
     Dosage: 2400 MG PER_CYCLE IV
     Route: 042
  5. LEUCOVORIN CALCIUM [Suspect]
     Indication: METASTASES TO LIVER
  6. LEUCOVORIN CALCIUM [Suspect]
     Indication: RECTAL CANCER
  7. OXALIPLATIN [Suspect]
     Indication: METASTASES TO LIVER
  8. OXALIPLATIN [Suspect]
     Indication: RECTAL CANCER

REACTIONS (6)
  - ANAEMIA [None]
  - ANGINA PECTORIS [None]
  - CARDIOGENIC SHOCK [None]
  - ELECTROCARDIOGRAM ST SEGMENT ABNORMAL [None]
  - RENAL FAILURE [None]
  - VASCULAR INSUFFICIENCY [None]
